FAERS Safety Report 6763832-0 (Version None)
Quarter: 2010Q2

REPORT INFORMATION
  Report Type: 
  Country: None (occurrence: None)
  Receive Date: 20100608
  Receipt Date: 20100603
  Transmission Date: 20101027
  Serious: Yes (Other)
  Sender: FDA-Public Use
  Company Number: 009988

PATIENT
  Age: 67 Year
  Sex: Male

DRUGS (2)
  1. CILOSTAZOL [Suspect]
     Indication: MYOCARDIAL INFARCTION
     Dosage: 50 MG BID ORAL
     Route: 048
     Dates: start: 20100301
  2. PLAVIX [Concomitant]

REACTIONS (2)
  - REFLUX OESOPHAGITIS [None]
  - TREATMENT NONCOMPLIANCE [None]
